FAERS Safety Report 22393943 (Version 8)
Quarter: 2024Q1

REPORT INFORMATION
  Report Type: Spontaneous
  Country: US (occurrence: US)
  Receive Date: 20230601
  Receipt Date: 20240209
  Transmission Date: 20240410
  Serious: Yes (Other)
  Sender: FDA-Public Use
  Company Number: US-PFIZER INC-PV202300094354

PATIENT
  Age: 42 Year
  Sex: Female

DRUGS (4)
  1. IBRANCE [Interacting]
     Active Substance: PALBOCICLIB
     Dosage: UNK
  2. IBRANCE [Interacting]
     Active Substance: PALBOCICLIB
     Dosage: LOWER DOSE
  3. AMBIEN [Interacting]
     Active Substance: ZOLPIDEM TARTRATE
  4. ZOMETA [Concomitant]
     Active Substance: ZOLEDRONIC ACID

REACTIONS (11)
  - Nephrolithiasis [Unknown]
  - Product dose omission in error [Unknown]
  - Vomiting [Unknown]
  - Pain [Unknown]
  - Nausea [Unknown]
  - Diarrhoea [Unknown]
  - Fatigue [Unknown]
  - Memory impairment [Unknown]
  - Drug interaction [Unknown]
  - Rash erythematous [Unknown]
  - Rash [Unknown]

NARRATIVE: CASE EVENT DATE: 20230607
